FAERS Safety Report 10906216 (Version 1)
Quarter: 2015Q1

REPORT INFORMATION
  Report Type: Spontaneous
  Country: FR (occurrence: FR)
  Receive Date: 20150311
  Receipt Date: 20150311
  Transmission Date: 20150721
  Serious: Yes (Other)
  Sender: FDA-Public Use
  Company Number: FR-009507513-1503FRA004749

PATIENT
  Age: 35 Year
  Sex: Male

DRUGS (3)
  1. INORIAL [Suspect]
     Active Substance: BILASTINE
     Indication: RHINITIS ALLERGIC
     Dosage: 20 MG, QD
     Route: 048
     Dates: start: 20150131, end: 20150211
  2. LOXEN [Concomitant]
     Active Substance: NICARDIPINE HYDROCHLORIDE
  3. SINGULAIR [Suspect]
     Active Substance: MONTELUKAST SODIUM
     Indication: RHINITIS ALLERGIC
     Dosage: 10 MG, QD
     Route: 048
     Dates: start: 20150131, end: 20150211

REACTIONS (2)
  - Mydriasis [Recovering/Resolving]
  - Visual acuity reduced [Recovering/Resolving]

NARRATIVE: CASE EVENT DATE: 20150206
